FAERS Safety Report 25456457 (Version 2)
Quarter: 2025Q2

REPORT INFORMATION
  Report Type: Spontaneous
  Country: US (occurrence: US)
  Receive Date: 20250619
  Receipt Date: 20250620
  Transmission Date: 20250716
  Serious: Yes (Death, Hospitalization, Other)
  Sender: PURDUE
  Company Number: US-PURDUE PHARMA-USA-2025-0318235

PATIENT
  Age: 54 Year
  Sex: Female
  Weight: 79.38 kg

DRUGS (4)
  1. OXYCONTIN [Suspect]
     Active Substance: OXYCODONE HYDROCHLORIDE
     Indication: Cancer pain
     Route: 048
  2. OXYCODONE HYDROCHLORIDE [Suspect]
     Active Substance: OXYCODONE HYDROCHLORIDE
     Indication: Cancer pain
     Route: 065
  3. MORPHINE SULFATE [Suspect]
     Active Substance: MORPHINE SULFATE
     Indication: Cancer pain
     Route: 065
  4. FEMARA [Concomitant]
     Active Substance: LETROZOLE
     Indication: Breast cancer metastatic
     Route: 065

REACTIONS (7)
  - Breast cancer metastatic [Fatal]
  - Road traffic accident [Unknown]
  - Sepsis [Unknown]
  - Drug dependence [Unknown]
  - Lymphoedema [Unknown]
  - Weight decreased [Unknown]
  - Product prescribing issue [Unknown]

NARRATIVE: CASE EVENT DATE: 20200201
